FAERS Safety Report 25619934 (Version 1)
Quarter: 2025Q3

REPORT INFORMATION
  Report Type: Spontaneous
  Country: KR (occurrence: KR)
  Receive Date: 20250730
  Receipt Date: 20250730
  Transmission Date: 20251020
  Serious: Yes (Hospitalization, Other)
  Sender: ALEXION PHARMACEUTICALS
  Company Number: KR-AstraZeneca-CH-00918175A

PATIENT
  Sex: Female

DRUGS (1)
  1. PULMICORT TURBUHALER [Suspect]
     Active Substance: BUDESONIDE

REACTIONS (5)
  - Abdominal pain upper [Unknown]
  - Nausea [Unknown]
  - Vomiting [Unknown]
  - Pulmonary vasculitis [Unknown]
  - Pneumonia [Unknown]
